FAERS Safety Report 6900579-1 (Version None)
Quarter: 2010Q3

REPORT INFORMATION
  Report Type: 
  Country: None (occurrence: None)
  Receive Date: 20100730
  Receipt Date: 20100723
  Transmission Date: 20110219
  Serious: Yes (Hospitalization)
  Sender: FDA-Public Use
  Company Number: 016170

PATIENT
  Age: 60 Year
  Sex: Male

DRUGS (4)
  1. KEPPRA [Suspect]
     Indication: CONVULSION
     Dosage: (500 MG BID ORAL)
     Route: 048
     Dates: start: 20100525, end: 20100603
  2. DEXAMETHASONE [Suspect]
     Indication: METASTASES TO CENTRAL NERVOUS SYSTEM
     Dosage: (4 MG QD)
     Dates: start: 20100509, end: 20100603
  3. PHENYTOIN [Suspect]
     Indication: CONVULSION
     Dosage: (200 MG TID ORAL)
     Route: 048
     Dates: start: 20100509, end: 20100603
  4. ACFOL (ACFOL) (NOT SPECIFIED) [Suspect]
     Indication: FOLATE DEFICIENCY
     Dosage: (5 MG QD ORAL)
     Route: 048
     Dates: start: 20100509, end: 20100603

REACTIONS (8)
  - CONVULSION [None]
  - LIP OEDEMA [None]
  - OROPHARYNGEAL BLISTERING [None]
  - RASH ERYTHEMATOUS [None]
  - RASH GENERALISED [None]
  - RASH PRURITIC [None]
  - RESPIRATORY DISTRESS [None]
  - TOXIC EPIDERMAL NECROLYSIS [None]
